FAERS Safety Report 16248096 (Version 1)
Quarter: 2019Q2

REPORT INFORMATION
  Report Type: Spontaneous
  Country: TW (occurrence: TW)
  Receive Date: 20190428
  Receipt Date: 20190428
  Transmission Date: 20190711
  Serious: Yes (Hospitalization)
  Sender: FDA-Public Use
  Company Number: TW-AMGEN-TWNSP2019066057

PATIENT
  Age: 57 Year
  Sex: Female

DRUGS (4)
  1. HYDROQUINE [Concomitant]
     Active Substance: HYDROXYCHLOROQUINE SULFATE
     Dosage: 1 DF, QD
  2. ENBREL [Suspect]
     Active Substance: ETANERCEPT
     Indication: RHEUMATOID ARTHRITIS
     Dosage: 25 MG, BID
     Route: 058
     Dates: start: 20130513, end: 20190408
  3. CELEBREX [Concomitant]
     Active Substance: CELECOXIB
     Dosage: 1 DF, QD
  4. METHOTREXATE. [Concomitant]
     Active Substance: METHOTREXATE
     Dosage: 4 DF, QW

REACTIONS (1)
  - Arthralgia [Recovering/Resolving]
